FAERS Safety Report 24256474 (Version 2)
Quarter: 2024Q4

REPORT INFORMATION
  Report Type: Spontaneous
  Country: ES (occurrence: ES)
  Receive Date: 20240828
  Receipt Date: 20241206
  Transmission Date: 20250115
  Serious: Yes (Other)
  Sender: AUROBINDO
  Company Number: ES-SUN PHARMACEUTICAL INDUSTRIES LTD-2024R1-461941

PATIENT
  Age: 37 Year
  Sex: Female
  Weight: 80 kg

DRUGS (4)
  1. BUPIVACAINE [Suspect]
     Active Substance: BUPIVACAINE
     Indication: Epidural analgesia
     Dosage: 10 MILLIGRAM (0.25%), TEST DOSE
     Route: 065
  2. BUPIVACAINE [Suspect]
     Active Substance: BUPIVACAINE
     Dosage: 7.5 MILLIGRAM (0.125%), INITIAL DOSE
     Route: 065
  3. BUPIVACAINE [Suspect]
     Active Substance: BUPIVACAINE
     Dosage: 0.0625%, CONTINUOUS INFUSION
     Route: 065
  4. FENTANYL [Suspect]
     Active Substance: FENTANYL
     Indication: Epidural analgesia
     Dosage: 1 ?G/ML AT 8 ML/H WITH 5ML BOLUSES
     Route: 040

REACTIONS (2)
  - Pneumorrhachis [Unknown]
  - Exposure during pregnancy [Recovered/Resolved]
